FAERS Safety Report 6340232-9 (Version None)
Quarter: 2009Q3

REPORT INFORMATION
  Report Type: 
  Country: None (occurrence: None)
  Receive Date: 20090902
  Receipt Date: 20090821
  Transmission Date: 20100115
  Serious: Yes (Death)
  Sender: FDA-Public Use
  Company Number: OPIR20090027

PATIENT
  Age: 18 Year
  Sex: Male

DRUGS (1)
  1. OXYMORPHONE [Suspect]
     Dates: end: 20090601

REACTIONS (2)
  - DRUG ABUSE [None]
  - OVERDOSE [None]
